FAERS Safety Report 8005127-3 (Version None)
Quarter: 2011Q4

REPORT INFORMATION
  Report Type: 
  Country: None (occurrence: None)
  Receive Date: 20111223
  Receipt Date: 20111214
  Transmission Date: 20120403
  Serious: Yes (Hospitalization)
  Sender: FDA-Public Use
  Company Number: PHHY2011CN68621

PATIENT
  Age: 69 Year
  Sex: Female

DRUGS (1)
  1. ZOLEDRONOC ACID [Suspect]
     Indication: OSTEOPOROSIS
     Dosage: 5 MG, UNK
     Route: 042
     Dates: start: 20100413

REACTIONS (19)
  - RESPIRATORY DISORDER [None]
  - JOINT EFFUSION [None]
  - VOMITING [None]
  - NAUSEA [None]
  - INFLUENZA [None]
  - PALPITATIONS [None]
  - DEPRESSED MOOD [None]
  - MALAISE [None]
  - INFLAMMATION [None]
  - BODY TEMPERATURE DECREASED [None]
  - PYREXIA [None]
  - GASTROINTESTINAL SOUNDS ABNORMAL [None]
  - ARTHRALGIA [None]
  - VITAL FUNCTIONS ABNORMAL [None]
  - INFECTION [None]
  - WHITE BLOOD CELL COUNT INCREASED [None]
  - TENDERNESS [None]
  - DRY MOUTH [None]
  - HEADACHE [None]
